FAERS Safety Report 13446127 (Version 1)
Quarter: 2017Q2

REPORT INFORMATION
  Report Type: Spontaneous
  Country: US (occurrence: US)
  Receive Date: 20170417
  Receipt Date: 20170417
  Transmission Date: 20170830
  Serious: No
  Sender: FDA-Public Use
  Company Number: US-ACCORD-044197

PATIENT
  Age: 54 Year
  Sex: Female
  Weight: 61.23 kg

DRUGS (1)
  1. SIMVASTATIN. [Suspect]
     Active Substance: SIMVASTATIN
     Indication: BLOOD CHOLESTEROL
     Dosage: QHS
     Route: 048
     Dates: start: 20151101, end: 20160828

REACTIONS (1)
  - Musculoskeletal pain [Recovered/Resolved]
